FAERS Safety Report 18957798 (Version 1)
Quarter: 2021Q1

REPORT INFORMATION
  Report Type: Spontaneous
  Country: FR (occurrence: FR)
  Receive Date: 20210302
  Receipt Date: 20210302
  Transmission Date: 20210420
  Serious: Yes (Hospitalization)
  Sender: FDA-Public Use
  Company Number: FR-ENDO PHARMACEUTICALS INC-2021-001205

PATIENT
  Age: 73 Year
  Sex: Male

DRUGS (4)
  1. FLUOROURACIL. [Concomitant]
     Active Substance: FLUOROURACIL
     Indication: MALIGNANT NEOPLASM PROGRESSION
  2. OXALIPLATIN. [Suspect]
     Active Substance: OXALIPLATIN
     Indication: MALIGNANT NEOPLASM PROGRESSION
     Dosage: UNK UNKNOWN, INFUSION
     Route: 065
  3. METHYLPREDNISOLONE. [Suspect]
     Active Substance: METHYLPREDNISOLONE
     Indication: PREMEDICATION
     Dosage: UNK UNKNOWN, UNKNOWN
     Route: 065
  4. FOLINIC ACID [Concomitant]
     Active Substance: LEUCOVORIN
     Indication: MALIGNANT NEOPLASM PROGRESSION

REACTIONS (4)
  - Acute kidney injury [Unknown]
  - Haemolytic anaemia [Unknown]
  - Renal tubular necrosis [Unknown]
  - Off label use [Recovered/Resolved]
